FAERS Safety Report 8618482 (Version 2)
Quarter: 2014Q1

REPORT INFORMATION
  Report Type: Spontaneous
  Country: US (occurrence: US)
  Receive Date: 20120618
  Receipt Date: 20140114
  Transmission Date: 20141002
  Serious: Yes (Hospitalization, Other)
  Sender: FDA-Public Use
  Company Number: US-ASTRAZENECA-2012SE36372

PATIENT
  Age: 56 Year
  Sex: Female
  Weight: 96.6 kg

DRUGS (11)
  1. NEXIUM [Suspect]
     Indication: GASTROOESOPHAGEAL REFLUX DISEASE
     Route: 048
     Dates: start: 1998, end: 2013
  2. NEXIUM [Suspect]
     Indication: GASTROOESOPHAGEAL REFLUX DISEASE
     Route: 048
     Dates: start: 20050202
  3. TAGAMET [Concomitant]
     Dates: start: 1997
  4. TUMS [Concomitant]
     Dates: start: 1997
  5. CRESTOR [Concomitant]
     Indication: BLOOD CHOLESTEROL ABNORMAL
  6. FOLIC ACID [Concomitant]
  7. ASPIRIN [Concomitant]
     Indication: THROMBOSIS
     Dates: start: 1994
  8. PHENTERMINE [Concomitant]
  9. WELLBUTRIN [Concomitant]
  10. METOLAZONE [Concomitant]
  11. ALPRAZOLAM [Concomitant]

REACTIONS (9)
  - Carpal tunnel syndrome [Unknown]
  - Intervertebral disc degeneration [Unknown]
  - Musculoskeletal discomfort [Unknown]
  - Gallbladder disorder [Unknown]
  - Limb discomfort [Unknown]
  - Osteoporosis [Unknown]
  - Multiple fractures [Unknown]
  - Osteopenia [Unknown]
  - Scoliosis [Unknown]
